FAERS Safety Report 13780132 (Version 3)
Quarter: 2017Q3

REPORT INFORMATION
  Report Type: Report from Study
  Country: None (occurrence: US)
  Receive Date: 20170724
  Receipt Date: 20170905
  Transmission Date: 20171127
  Serious: Yes (Other)
  Sender: FDA-Public Use
  Company Number: US-ABBVIE-17K-163-1834616-00

PATIENT
  Age: 50 Year
  Sex: Female
  Weight: 75.82 kg

DRUGS (14)
  1. XANAX [Concomitant]
     Active Substance: ALPRAZOLAM
     Indication: PRODUCT USED FOR UNKNOWN INDICATION
  2. GABAPENTIN. [Concomitant]
     Active Substance: GABAPENTIN
     Indication: PRODUCT USED FOR UNKNOWN INDICATION
  3. HUMIRA [Suspect]
     Active Substance: ADALIMUMAB
     Indication: COLITIS ULCERATIVE
     Dosage: LOADING DOSE
     Route: 058
     Dates: start: 201511, end: 201511
  4. ADVAIR HFA [Concomitant]
     Active Substance: FLUTICASONE PROPIONATE\SALMETEROL XINAFOATE
     Indication: PRODUCT USED FOR UNKNOWN INDICATION
  5. FENOFIBRATE. [Concomitant]
     Active Substance: FENOFIBRATE
     Indication: PRODUCT USED FOR UNKNOWN INDICATION
  6. TRAMADOL. [Concomitant]
     Active Substance: TRAMADOL
     Indication: PRODUCT USED FOR UNKNOWN INDICATION
  7. HUMIRA [Suspect]
     Active Substance: ADALIMUMAB
     Indication: CROHN^S DISEASE
     Dosage: LOADING DOSE 2 WEEKS LATER
     Route: 058
     Dates: start: 201511, end: 201511
  8. HUMIRA [Suspect]
     Active Substance: ADALIMUMAB
     Route: 058
  9. BENTYL [Concomitant]
     Active Substance: DICYCLOMINE HYDROCHLORIDE
     Indication: PRODUCT USED FOR UNKNOWN INDICATION
  10. METFORMIN [Concomitant]
     Active Substance: METFORMIN HYDROCHLORIDE
     Indication: PRODUCT USED FOR UNKNOWN INDICATION
  11. CYMBALTA [Concomitant]
     Active Substance: DULOXETINE HYDROCHLORIDE
     Indication: PRODUCT USED FOR UNKNOWN INDICATION
  12. COLESTIPOL [Concomitant]
     Active Substance: COLESTIPOL
     Indication: PRODUCT USED FOR UNKNOWN INDICATION
  13. HUMIRA [Suspect]
     Active Substance: ADALIMUMAB
     Dosage: 2 WEEKS LATER OF LOADING DOSE
     Route: 058
     Dates: start: 2015
  14. LANSOPRAZOLE. [Concomitant]
     Active Substance: LANSOPRAZOLE
     Indication: PRODUCT USED FOR UNKNOWN INDICATION

REACTIONS (18)
  - Nasopharyngitis [Unknown]
  - Fatigue [Unknown]
  - Thyroid mass [Not Recovered/Not Resolved]
  - Frequent bowel movements [Unknown]
  - Ear pain [Unknown]
  - Lymphadenopathy [Unknown]
  - Nervousness [Unknown]
  - Vomiting [Unknown]
  - Pulmonary pain [Unknown]
  - Malignant polyp [Recovered/Resolved]
  - Diarrhoea [Not Recovered/Not Resolved]
  - Large intestine polyp [Recovered/Resolved]
  - Influenza [Unknown]
  - Colon adenoma [Recovered/Resolved]
  - Spinal operation [Unknown]
  - Diarrhoea [Unknown]
  - Precancerous mucosal lesion [Recovered/Resolved]
  - Escherichia infection [Not Recovered/Not Resolved]

NARRATIVE: CASE EVENT DATE: 2017
